FAERS Safety Report 8242305-2 (Version None)
Quarter: 2012Q1

REPORT INFORMATION
  Report Type: 
  Country: None (occurrence: None)
  Receive Date: 20120329
  Receipt Date: 20120327
  Transmission Date: 20120608
  Serious: No
  Sender: FDA-Public Use
  Company Number: US-PFIZER INC-2009262757

PATIENT
  Sex: Female
  Weight: 45.4 kg

DRUGS (8)
  1. CHANTIX [Suspect]
     Dosage: UNK
     Route: 048
  2. PLAVIX [Concomitant]
     Indication: ANTICOAGULANT THERAPY
  3. SPIRIVA [Concomitant]
     Dosage: UNK
  4. VITAMIN B COMPLEX CAP [Concomitant]
     Dosage: UNK
  5. CHANTIX [Suspect]
     Indication: SMOKING CESSATION THERAPY
     Dosage: 0.5 MG DAILY
     Route: 048
  6. PLAVIX [Concomitant]
     Indication: CEREBROVASCULAR ACCIDENT PROPHYLAXIS
     Dosage: UNK, DAILY
  7. LIPITOR [Concomitant]
     Indication: CEREBROVASCULAR ACCIDENT PROPHYLAXIS
     Dosage: UNK, DAILY
  8. ASPIRIN [Concomitant]
     Indication: ROUTINE HEALTH MAINTENANCE
     Dosage: UNK, DAILY

REACTIONS (2)
  - ABNORMAL DREAMS [None]
  - NAUSEA [None]
